FAERS Safety Report 21267547 (Version 2)
Quarter: 2022Q3

REPORT INFORMATION
  Report Type: Spontaneous
  Country: IT (occurrence: IT)
  Receive Date: 20220829
  Receipt Date: 20220906
  Transmission Date: 20221026
  Serious: Yes (Other)
  Sender: FDA-Public Use
  Company Number: IT-AstraZeneca-2022A265042

PATIENT
  Age: 64 Year
  Sex: Male

DRUGS (10)
  1. ATORVASTATIN [Interacting]
     Active Substance: ATORVASTATIN
     Indication: Acute myocardial infarction
     Dosage: 80 MILLIGRAM, QD
     Route: 065
  2. ATORVASTATIN [Interacting]
     Active Substance: ATORVASTATIN
     Indication: Angiocardiogram
     Dosage: 20 MILLIGRAM, QD
     Route: 065
  3. TICAGRELOR [Interacting]
     Active Substance: TICAGRELOR
     Indication: Antiplatelet therapy
     Dosage: 180 MILLIGRAM, QD
     Route: 048
  4. TICAGRELOR [Interacting]
     Active Substance: TICAGRELOR
     Indication: Acute myocardial infarction
  5. TICAGRELOR [Interacting]
     Active Substance: TICAGRELOR
     Indication: Angiocardiogram
  6. RILPIVIRINE [Concomitant]
     Active Substance: RILPIVIRINE
     Indication: HIV infection
     Dosage: UNK
     Route: 065
  7. ASPIRIN [Interacting]
     Active Substance: ASPIRIN
     Indication: Acute myocardial infarction
     Dosage: 100 MILLIGRAM, QD
     Route: 065
  8. ASPIRIN [Interacting]
     Active Substance: ASPIRIN
     Indication: Angiocardiogram
  9. DARUNAVIR [Concomitant]
     Active Substance: DARUNAVIR
     Dosage: UNK
     Route: 065
  10. COBICISTAT [Concomitant]
     Active Substance: COBICISTAT
     Indication: HIV infection
     Dosage: UNK
     Route: 065

REACTIONS (2)
  - Drug interaction [Recovered/Resolved]
  - Product use in unapproved indication [Not Recovered/Not Resolved]
